FAERS Safety Report 6234740-9 (Version None)
Quarter: 2009Q2

REPORT INFORMATION
  Report Type: 
  Country: None (occurrence: None)
  Receive Date: 20090618
  Receipt Date: 20090612
  Transmission Date: 20091009
  Serious: Yes (Death, Hospitalization)
  Sender: FDA-Public Use
  Company Number: US-CELGENEUS-163-21880-09051760

PATIENT
  Sex: Male
  Weight: 81.72 kg

DRUGS (12)
  1. REVLIMID [Suspect]
     Route: 048
     Dates: start: 20090514, end: 20090524
  2. GEMCITABINE [Suspect]
     Route: 051
     Dates: start: 20090514, end: 20090521
  3. DURAGESIC-100 [Concomitant]
     Indication: PAIN
     Route: 065
     Dates: start: 20090525
  4. DURAGESIC-100 [Concomitant]
     Route: 062
     Dates: start: 20090501
  5. DILAUDID [Concomitant]
     Indication: PAIN
     Dosage: 2-4MG
     Route: 051
     Dates: start: 20090525
  6. DILAUDID [Concomitant]
     Dosage: 4-8MG
     Route: 051
  7. DILAUDID [Concomitant]
     Route: 048
     Dates: start: 20090501
  8. METFORMIN HCL [Concomitant]
     Indication: DRUG USE FOR UNKNOWN INDICATION
     Route: 048
  9. OXYCONTIN [Concomitant]
     Indication: DRUG USE FOR UNKNOWN INDICATION
     Route: 065
  10. LISINOPRIL [Concomitant]
     Indication: DRUG USE FOR UNKNOWN INDICATION
     Route: 065
  11. LOVASTATIN [Concomitant]
     Indication: DRUG USE FOR UNKNOWN INDICATION
     Route: 065
  12. METOPROLOL SUCCINATE [Concomitant]
     Indication: DRUG USE FOR UNKNOWN INDICATION
     Route: 065

REACTIONS (5)
  - DEATH [None]
  - GASTROINTESTINAL PERFORATION [None]
  - NAUSEA [None]
  - OBSTRUCTION GASTRIC [None]
  - VOMITING [None]
